FAERS Safety Report 19673704 (Version 1)
Quarter: 2021Q3

REPORT INFORMATION
  Report Type: Spontaneous
  Country: US (occurrence: US)
  Receive Date: 20210807
  Receipt Date: 20210807
  Transmission Date: 20211014
  Serious: Yes (Disabling)
  Sender: FDA-Public Use
  Company Number: None

PATIENT
  Age: 68 Year
  Sex: Female
  Weight: 72 kg

DRUGS (7)
  1. AMLODIPINE BESYLATE. [Suspect]
     Active Substance: AMLODIPINE BESYLATE
     Indication: LABORATORY TEST ABNORMAL
     Dosage: ?          QUANTITY:1 TABLET(S);?
     Route: 048
     Dates: start: 20201119, end: 20210710
  2. SENIOR MULTIVITAMINS [Concomitant]
     Active Substance: VITAMINS
  3. CALCIUM [Concomitant]
     Active Substance: CALCIUM
  4. OMEGA 3 [Concomitant]
     Active Substance: OMEGA-3 FATTY ACIDS
  5. VITAMIN D [Concomitant]
     Active Substance: VITAMIN D NOS
  6. ULTRA COLLAGEN [Concomitant]
  7. LYSINE [Concomitant]
     Active Substance: LYSINE

REACTIONS (5)
  - Oedema peripheral [None]
  - Gait inability [None]
  - Sitting disability [None]
  - Osteoporosis [None]
  - White blood cell count decreased [None]

NARRATIVE: CASE EVENT DATE: 20210707
